FAERS Safety Report 25758307 (Version 1)
Quarter: 2025Q3

REPORT INFORMATION
  Report Type: Report from Study
  Country: TH (occurrence: TH)
  Receive Date: 20250904
  Receipt Date: 20250904
  Transmission Date: 20251021
  Serious: Yes (Other)
  Sender: EMD SERONO INC
  Company Number: TH-Merck Healthcare KGaA-2025044177

PATIENT
  Age: 9 Year
  Sex: Female

DRUGS (1)
  1. SAIZEN [Suspect]
     Active Substance: SOMATROPIN
     Indication: Product used for unknown indication
     Dosage: 0.6 MG X 7 DAYS/WEEK
     Dates: start: 20240228

REACTIONS (2)
  - Syncope [Unknown]
  - Therapeutic response decreased [Unknown]
